FAERS Safety Report 12716957 (Version 3)
Quarter: 2019Q4

REPORT INFORMATION
  Report Type: Spontaneous
  Country: US (occurrence: US)
  Receive Date: 20160906
  Receipt Date: 20191111
  Transmission Date: 20200122
  Serious: Yes (Death, Other)
  Sender: FDA-Public Use
  Company Number: US-PFIZER INC-2016416877

PATIENT
  Age: 71 Year
  Sex: Male

DRUGS (5)
  1. TIAZAC [Concomitant]
     Active Substance: DILTIAZEM HYDROCHLORIDE
     Dosage: 420 MG, UNK
     Dates: start: 20000101
  2. DIGITEK [Concomitant]
     Active Substance: DIGOXIN
     Dosage: 250 UG, UNK
     Dates: start: 2003
  3. LANOXIN [Concomitant]
     Active Substance: DIGOXIN
     Dosage: 250 UG, UNK
     Dates: start: 2001
  4. VIAGRA [Suspect]
     Active Substance: SILDENAFIL CITRATE
     Indication: ERECTILE DYSFUNCTION
     Dosage: 100 MG, AS NEEDED
     Route: 048
     Dates: start: 20010611, end: 20020330
  5. CLONIDINE HCL [Concomitant]
     Active Substance: CLONIDINE HYDROCHLORIDE
     Dosage: 1 MG, UNK
     Dates: start: 2001, end: 2004

REACTIONS (1)
  - Malignant melanoma in situ [Unknown]

NARRATIVE: CASE EVENT DATE: 20140902
